FAERS Safety Report 10550283 (Version 1)
Quarter: 2014Q4

REPORT INFORMATION
  Report Type: Spontaneous
  Country: US (occurrence: US)
  Receive Date: 20141029
  Receipt Date: 20141029
  Transmission Date: 20150529
  Serious: Yes (Other)
  Sender: FDA-Public Use
  Company Number: US-JNJCP-30000246982

PATIENT
  Age: 51 Year
  Sex: Female

DRUGS (1)
  1. JOHNSONS BABY PRODUCTS [Suspect]
     Active Substance: UNSPECIFIED INGREDIENT
     Route: 061
     Dates: start: 1980, end: 201405

REACTIONS (1)
  - Ovarian cancer [Unknown]

NARRATIVE: CASE EVENT DATE: 201405
